FAERS Safety Report 25323601 (Version 1)
Quarter: 2025Q2

REPORT INFORMATION
  Report Type: Spontaneous
  Country: CN (occurrence: CN)
  Receive Date: 20250516
  Receipt Date: 20250516
  Transmission Date: 20250717
  Serious: Yes (Other)
  Sender: ROCHE
  Company Number: CN-ROCHE-10000283010

PATIENT
  Age: 54 Year
  Sex: Female
  Weight: 48 kg

DRUGS (2)
  1. TRASTUZUMAB [Suspect]
     Active Substance: TRASTUZUMAB
     Indication: Breast cancer
     Route: 042
     Dates: start: 20250429, end: 20250429
  2. CARBOPLATIN [Suspect]
     Active Substance: CARBOPLATIN
     Indication: Breast cancer
     Route: 042
     Dates: start: 20250430, end: 20250430

REACTIONS (2)
  - Myelosuppression [Unknown]
  - Vomiting [Unknown]

NARRATIVE: CASE EVENT DATE: 20250506
